FAERS Safety Report 26084032 (Version 2)
Quarter: 2025Q4

REPORT INFORMATION
  Report Type: Report from Study
  Country: US (occurrence: US)
  Receive Date: 20251124
  Receipt Date: 20251230
  Transmission Date: 20260117
  Serious: No
  Sender: DR REDDYS
  Company Number: US-DRL-USA-USA/2025/11/017245

PATIENT
  Age: 15 Year
  Sex: Male
  Weight: 60.9 kg

DRUGS (2)
  1. ZENATANE [Suspect]
     Active Substance: ISOTRETINOIN
     Indication: Acne
     Dosage: NDC NUMBER; 55111-0137-81
     Route: 048
     Dates: start: 202503, end: 202510
  2. ZENATANE [Suspect]
     Active Substance: ISOTRETINOIN
     Dosage: NDC NUMBER; 55111-0113-78
     Route: 048
     Dates: start: 202503, end: 202510

REACTIONS (1)
  - Nasal dryness [Unknown]

NARRATIVE: CASE EVENT DATE: 20250401
